FAERS Safety Report 6965773-2 (Version None)
Quarter: 2010Q3

REPORT INFORMATION
  Report Type: 
  Country: None (occurrence: None)
  Receive Date: 20100903
  Receipt Date: 20100824
  Transmission Date: 20110219
  Serious: Yes (Life-Threatening, Hospitalization)
  Sender: FDA-Public Use
  Company Number: 11598133

PATIENT
  Age: 41 Year
  Sex: Male

DRUGS (21)
  1. ZERIT [Suspect]
     Indication: ACQUIRED IMMUNODEFICIENCY SYNDROME
     Dosage: ONGOING 01-AUG-1995 TO 01-MAR-1996 AND 01-APR-1998 TO 08-DEC-2000.
     Route: 048
     Dates: start: 19950801, end: 20001208
  2. VIDEX [Suspect]
     Indication: ACQUIRED IMMUNODEFICIENCY SYNDROME
     Dosage: ONGOING 01/SEPT/1993 - 01/AUG/1994; 01/MAR/1996 - 01/OCT/1996; AND 10/JAN/2000 - 08/DEC/2000
     Route: 048
     Dates: start: 19930901, end: 20001208
  3. STOCRIN CAPS [Suspect]
     Indication: ACQUIRED IMMUNODEFICIENCY SYNDROME
     Dosage: THERAPY INTERP 12/8/00,RESTARTED 3/9/01,INTERRUPT7/01,+RESTARTED 7/23/01-25SEP8(2622 DAYS)
     Route: 048
     Dates: start: 20000110, end: 20080925
  4. ZIAGEN [Suspect]
     Indication: ACQUIRED IMMUNODEFICIENCY SYNDROME
     Dosage: THERAPY INTERRUPTED FROM 08-DEC-2000 TO 05-JUN-2001
     Route: 048
     Dates: start: 20000124, end: 20010706
  5. COMBIVIR [Suspect]
     Indication: HIV INFECTION
     Route: 048
     Dates: start: 20010213, end: 20010510
  6. KALETRA [Suspect]
     Indication: HIV INFECTION
     Dosage: 8 CAPS 9MAR-6JUL01, RESTARTED 23JUL01 STOPPED 4OCT6 REDUCED TO 6 TABS FROM 05OCT6-15SEP8 (1900 DAYS)
     Dates: start: 20010309, end: 20080925
  7. EPIVIR [Suspect]
     Dosage: THERAPY INTERRUPTED ON 09-JAN-2000, DISCONTINUED ON 06-JUL-2001.
     Route: 048
     Dates: start: 19961001, end: 20010706
  8. AMPRENAVIR [Suspect]
     Indication: HIV INFECTION
     Route: 048
     Dates: start: 20010723, end: 20050803
  9. FOSAMPRENAVIR CALCIUM [Suspect]
     Indication: HIV INFECTION
     Route: 048
     Dates: start: 20050804
  10. SOMATROPIN [Suspect]
     Indication: WEIGHT DECREASED
     Route: 058
     Dates: start: 20010319, end: 20011112
  11. TRUVADA [Suspect]
     Indication: HIV INFECTION
     Dosage: 1 DF = 1 TABLET
     Route: 048
     Dates: start: 20080926, end: 20091001
  12. PREZISTA [Suspect]
     Indication: HIV INFECTION
     Dosage: TABS
     Route: 048
     Dates: start: 20080926
  13. SAQUINAVIR MESYLATE [Suspect]
     Indication: HIV INFECTION
     Dates: start: 20010105, end: 20010308
  14. NORVIR [Suspect]
     Indication: HIV INFECTION
     Dosage: 05JAN01 TO 04FEB01, 05FEB01 TO 08MAR01 AND 26SEP08 TO ONGOING.
     Dates: start: 20010105
  15. LOPEMIN [Concomitant]
     Indication: DIARRHOEA
     Dosage: 3MG STOPPED ON 31-MAR-2002 AND REDUCED TO 2 MG FROM 01-APR-2002
     Route: 048
     Dates: start: 19921101
  16. RETROVIR [Concomitant]
     Dosage: INTERRUPTED 9/1/93 TO 8/1/94, INTERRUPTED 8/1/95 TO 3/1/96, INTERRUPTED 4/1/98 TO 5/11/01
     Route: 048
     Dates: start: 19921101, end: 20010604
  17. CRIXIVAN [Concomitant]
     Route: 048
     Dates: start: 19970501, end: 19980401
  18. VIRACEPT [Concomitant]
     Route: 048
     Dates: start: 19980401, end: 20000109
  19. RECOMBINATE [Concomitant]
     Indication: FACTOR VIII DEFICIENCY
     Route: 042
     Dates: start: 19980828
  20. OIF [Concomitant]
     Indication: HEPATITIS C
     Dosage: 10 (MILLION-BILLION UNIT)
     Route: 030
     Dates: start: 20000710, end: 20001208
  21. LOPERAMIDE HCL [Concomitant]
     Dates: start: 20020401, end: 20090401

REACTIONS (8)
  - BLOOD AMYLASE INCREASED [None]
  - DIARRHOEA [None]
  - HYPERLACTACIDAEMIA [None]
  - HYPERLIPIDAEMIA [None]
  - LACTIC ACIDOSIS [None]
  - NEUROPATHY PERIPHERAL [None]
  - PANCREATITIS ACUTE [None]
  - RENAL FAILURE ACUTE [None]
